FAERS Safety Report 10243118 (Version 1)
Quarter: 2014Q2

REPORT INFORMATION
  Report Type: Spontaneous
  Country: US (occurrence: None)
  Receive Date: 20140616
  Receipt Date: 20140616
  Transmission Date: 20141212
  Serious: Yes (Hospitalization)
  Sender: FDA-Public Use
  Company Number: None

PATIENT
  Age: 50 Year
  Sex: Male
  Weight: 74.4 kg

DRUGS (6)
  1. CC-4047 (POMALIDOMIDE) CELGENE PHARMACEUTICALS [Suspect]
     Indication: SICKLE CELL ANAEMIA
     Route: 048
     Dates: start: 20120424
  2. ASPIRIN [Concomitant]
  3. FOLIC ACID [Concomitant]
  4. MS CONTIN [Concomitant]
  5. MULTIVITAMIN [Concomitant]
  6. ROXICODONE [Concomitant]

REACTIONS (3)
  - Osteomyelitis chronic [None]
  - Haemoglobin decreased [None]
  - Haematocrit decreased [None]
